FAERS Safety Report 25341739 (Version 3)
Quarter: 2025Q3

REPORT INFORMATION
  Report Type: Spontaneous
  Country: US (occurrence: US)
  Receive Date: 20250521
  Receipt Date: 20250721
  Transmission Date: 20251021
  Serious: Yes (Other)
  Sender: PFIZER
  Company Number: US-PFIZER INC-202500104136

PATIENT
  Age: 48 Year
  Sex: Female

DRUGS (1)
  1. VELSIPITY [Suspect]
     Active Substance: ETRASIMOD ARGININE
     Dosage: 2 MG TAKE 1 TABLET BY MOUTH ONCE DAILY
     Route: 048

REACTIONS (8)
  - Haematochezia [Unknown]
  - Anal fissure [Unknown]
  - Pain [Unknown]
  - Defaecation urgency [Unknown]
  - Pruritus [Unknown]
  - Mucous stools [Unknown]
  - Swelling [Unknown]
  - Sinus disorder [Unknown]

NARRATIVE: CASE EVENT DATE: 20250214
